FAERS Safety Report 16769522 (Version 1)
Quarter: 2019Q3

REPORT INFORMATION
  Report Type: Spontaneous
  Country: US (occurrence: US)
  Receive Date: 20190903
  Receipt Date: 20190903
  Transmission Date: 20191005
  Serious: Yes (Hospitalization, Other)
  Sender: FDA-Public Use
  Company Number: US-COLLEGIUM PHARMACEUTICAL, INC.-US-2019COL001028

PATIENT
  Age: 72 Year
  Sex: Female
  Weight: 63.39 kg

DRUGS (3)
  1. SYNTHROID [Concomitant]
     Active Substance: LEVOTHYROXINE SODIUM
     Indication: PRODUCT USED FOR UNKNOWN INDICATION
     Dosage: UNK
  2. NUCYNTA [Suspect]
     Active Substance: TAPENTADOL HYDROCHLORIDE
     Indication: PAIN
     Dosage: 0.25 MG, PRN
     Route: 048
     Dates: start: 201801
  3. VITAMIN B [Concomitant]
     Active Substance: VITAMIN B
     Indication: PRODUCT USED FOR UNKNOWN INDICATION
     Dosage: 5000 IU, QD

REACTIONS (8)
  - Oral pruritus [Unknown]
  - Pneumonia [Unknown]
  - Gastrointestinal bacterial overgrowth [Unknown]
  - Pancreatic disorder [Unknown]
  - Ureteric obstruction [Unknown]
  - Weight decreased [Unknown]
  - Pelvic operation [Unknown]
  - Pruritus [Unknown]

NARRATIVE: CASE EVENT DATE: 201808
